FAERS Safety Report 6884033-1 (Version None)
Quarter: 2010Q3

REPORT INFORMATION
  Report Type: 
  Country: None (occurrence: None)
  Receive Date: 20100729
  Receipt Date: 20100716
  Transmission Date: 20110219
  Serious: Yes (Other)
  Sender: FDA-Public Use
  Company Number: PHHY2010DE46736

PATIENT
  Sex: Male

DRUGS (4)
  1. ZOLEDRONATE T29581+ [Suspect]
     Indication: BONE DISORDER
     Dosage: 4 MG EVERY 4 WEEKS
     Route: 042
     Dates: start: 20090728, end: 20100406
  2. PACLITAXEL + CARBOPLATIN [Concomitant]
     Dosage: 6 CYCLES(580 MG)
     Dates: start: 20090819, end: 20091202
  3. BEVACIZUMAB [Concomitant]
     Dosage: UNK
     Dates: start: 20090819
  4. CISPLATIN [Concomitant]
     Dosage: 75 MG
     Dates: start: 20100222

REACTIONS (1)
  - OSTEONECROSIS OF JAW [None]
